FAERS Safety Report 7355822-4 (Version None)
Quarter: 2011Q1

REPORT INFORMATION
  Report Type: 
  Country: None (occurrence: None)
  Receive Date: 20110316
  Receipt Date: 20110111
  Transmission Date: 20110831
  Serious: No
  Sender: FDA-Public Use
  Company Number: US-B.I. PHARMACEUTICALS,INC./RIDGEFIELD-2010-BP-15270BP

PATIENT
  Sex: Female

DRUGS (16)
  1. OMEPRAZOLE [Concomitant]
     Indication: IRRITABLE BOWEL SYNDROME
  2. DIOVAN [Concomitant]
     Indication: HYPERTENSION
  3. MULTAQ [Concomitant]
     Indication: ATRIAL FIBRILLATION
  4. CELEBREX [Concomitant]
     Indication: FIBROMYALGIA
  5. SYNTHROID [Concomitant]
     Indication: THYROID DISORDER
  6. MIRAPEX [Concomitant]
     Indication: RESTLESS LEGS SYNDROME
  7. LANOXIN [Concomitant]
     Indication: HEART RATE INCREASED
  8. PRADAXA [Suspect]
     Indication: ATRIAL FIBRILLATION
     Dosage: 300 MG
     Route: 048
     Dates: start: 20101220
  9. PRADAXA [Suspect]
     Indication: CEREBROVASCULAR ACCIDENT PROPHYLAXIS
  10. BUSPAR [Concomitant]
     Indication: IRRITABLE BOWEL SYNDROME
  11. ROBINUL FORTE [Concomitant]
     Indication: IRRITABLE BOWEL SYNDROME
  12. ZOFRAN [Concomitant]
     Indication: PROPHYLAXIS
  13. BONIVA [Concomitant]
     Indication: OSTEOPOROSIS
  14. LORTAB [Concomitant]
     Indication: BACK PAIN
  15. ALPHAGAN [Concomitant]
     Indication: HERPES ZOSTER
  16. NORVASC [Concomitant]
     Indication: HYPERTENSION

REACTIONS (2)
  - OEDEMA PERIPHERAL [None]
  - SWELLING FACE [None]
